FAERS Safety Report 9723756 (Version 1)
Quarter: 2013Q4

REPORT INFORMATION
  Report Type: Spontaneous
  Country: FR (occurrence: FR)
  Receive Date: 20131202
  Receipt Date: 20131202
  Transmission Date: 20140711
  Serious: Yes (Hospitalization, Other)
  Sender: FDA-Public Use
  Company Number: FR-PFIZER INC-2013338495

PATIENT
  Age: 67 Year
  Sex: Female

DRUGS (5)
  1. FLUOROURACILE PFIZER [Suspect]
     Indication: INVASIVE DUCTAL BREAST CARCINOMA
     Dosage: 500 MG/M2, DAILY
     Route: 041
     Dates: start: 20131007, end: 20131007
  2. EPIRUBICIN [Suspect]
     Indication: INVASIVE DUCTAL BREAST CARCINOMA
     Dosage: 100 MG/M2, DAILY
     Route: 041
     Dates: start: 20131007, end: 20131007
  3. ENDOXAN [Suspect]
     Indication: INVASIVE DUCTAL BREAST CARCINOMA
     Dosage: 500 MG/M2, DAILY
     Route: 041
     Dates: start: 20131007, end: 20131007
  4. CRESTOR [Concomitant]
  5. LEXOMIL [Concomitant]

REACTIONS (3)
  - Febrile neutropenia [Recovered/Resolved]
  - Agranulocytosis [Recovered/Resolved]
  - Thrombocytopenia [Recovered/Resolved]
